FAERS Safety Report 6654129-8 (Version None)
Quarter: 2010Q1

REPORT INFORMATION
  Report Type: 
  Country: None (occurrence: None)
  Receive Date: 20100326
  Receipt Date: 20100316
  Transmission Date: 20100710
  Serious: Yes (Death, Hospitalization)
  Sender: FDA-Public Use
  Company Number: FR-PFIZER INC-2009215802

PATIENT
  Age: 63 Year
  Sex: Male

DRUGS (4)
  1. SUNITINIB MALATE [Suspect]
     Indication: HEPATIC NEOPLASM MALIGNANT
     Dosage: 37.5 MG, 1X/DAY
     Route: 048
     Dates: start: 20090129, end: 20090501
  2. SPIRONOLACTONE [Concomitant]
     Indication: BLOOD PRESSURE
     Dosage: UNK MG, 1X/DAY
     Dates: start: 20070801
  3. OMEPRAZOLE [Concomitant]
     Indication: GASTROOESOPHAGEAL REFLUX DISEASE
     Dosage: UNK MG, 1X/DAY
     Dates: start: 20070801
  4. VITAMIN B1 AND B6 [Concomitant]
     Indication: PROPHYLAXIS
     Dosage: UNK
     Dates: start: 20070801

REACTIONS (1)
  - ACUTE PULMONARY OEDEMA [None]
